FAERS Safety Report 6295880-1 (Version None)
Quarter: 2009Q3

REPORT INFORMATION
  Report Type: 
  Country: None (occurrence: None)
  Receive Date: 20090731
  Receipt Date: 20090715
  Transmission Date: 20100115
  Serious: Yes (Other)
  Sender: FDA-Public Use
  Company Number: US-1170283

PATIENT
  Sex: Male

DRUGS (1)
  1. MIOSTAT [Suspect]
     Indication: CATARACT OPERATION
     Dosage: 1.5 ML INTRAOCULAR
     Route: 031

REACTIONS (2)
  - POST PROCEDURAL COMPLICATION [None]
  - VISUAL IMPAIRMENT [None]
